FAERS Safety Report 7526865-2 (Version None)
Quarter: 2011Q2

REPORT INFORMATION
  Report Type: 
  Country: None (occurrence: None)
  Receive Date: 20110606
  Receipt Date: 20110531
  Transmission Date: 20111010
  Serious: Yes (Death, Hospitalization, Other)
  Sender: FDA-Public Use
  Company Number: PHHY2011JP36101

PATIENT
  Age: 62 Year
  Sex: Male

DRUGS (4)
  1. AFINITOR [Suspect]
     Indication: RENAL CELL CARCINOMA
     Dosage: 10 MG, DAILY
     Route: 048
     Dates: start: 20100503, end: 20100519
  2. SORAFENIB TOSILATE [Suspect]
     Indication: RENAL CELL CARCINOMA
     Dosage: 800 MG, DAILY
     Dates: start: 20080308, end: 20090826
  3. SUNITINIB MALATE [Suspect]
     Indication: RENAL CELL CARCINOMA
     Dosage: 50 MG, DAILY
     Dates: start: 20090827, end: 20100518
  4. INTERFERON ALFA [Concomitant]
     Indication: METASTATIC RENAL CELL CARCINOMA
     Dosage: UNK
     Dates: start: 20070801, end: 20080301

REACTIONS (5)
  - METASTASES TO HEART [None]
  - WEIGHT DECREASED [None]
  - NEOPLASM MALIGNANT [None]
  - DIARRHOEA [None]
  - DECREASED APPETITE [None]
